FAERS Safety Report 5206332-1 (Version None)
Quarter: 2006Q4

REPORT INFORMATION
  Report Type: 
  Country: None (occurrence: None)
  Receive Date: 20061026
  Receipt Date: 20060713
  Transmission Date: 20070319
  Serious: Yes (Other)
  Sender: FDA-Public Use
  Company Number: 2006087852

PATIENT
  Age: 61 Year
  Sex: Female

DRUGS (12)
  1. LYRICA [Suspect]
     Indication: NECK PAIN
     Dosage: 150 MG (50 MG, 3 IN 1 D), ORAL
     Route: 048
     Dates: start: 20060525
  2. NEXIUM [Concomitant]
  3. ZELNORM [Concomitant]
  4. NORTRIPTYLINE HCL [Concomitant]
  5. ZOCOR [Concomitant]
  6. VICODIN [Concomitant]
  7. BUSPAR [Concomitant]
  8. ZANAFLEX [Concomitant]
  9. DICYCLOMINE [Concomitant]
  10. HYDROCHLOROTHIAZIDE [Concomitant]
  11. AMBIEN [Concomitant]
  12. SEROQUEL [Concomitant]

REACTIONS (1)
  - WEIGHT INCREASED [None]
